FAERS Safety Report 9047802 (Version 1)
Quarter: 2013Q1

REPORT INFORMATION
  Report Type: Spontaneous
  Country: US (occurrence: US)
  Receive Date: 20130204
  Receipt Date: 20130204
  Transmission Date: 20140127
  Serious: No
  Sender: FDA-Public Use
  Company Number: US-AMGEN-USASP2012084444

PATIENT
  Sex: Male

DRUGS (6)
  1. ENBREL [Suspect]
     Indication: PRODUCT USED FOR UNKNOWN INDICATION
     Dosage: UNK
  2. GABAPENTIN [Concomitant]
  3. ALLOPURINOL [Concomitant]
  4. MOBIC [Concomitant]
  5. PLAQUENIL                          /00072602/ [Concomitant]
  6. PREDNISONE [Concomitant]

REACTIONS (3)
  - Vision blurred [Not Recovered/Not Resolved]
  - Tenderness [Unknown]
  - Erythema [Unknown]
